FAERS Safety Report 19182918 (Version 3)
Quarter: 2021Q2

REPORT INFORMATION
  Report Type: Spontaneous
  Country: US (occurrence: US)
  Receive Date: 20210426
  Receipt Date: 20210603
  Transmission Date: 20210717
  Serious: Yes (Hospitalization, Other)
  Sender: FDA-Public Use
  Company Number: US-ELI_LILLY_AND_COMPANY-US202104008744

PATIENT
  Age: 37 Year
  Sex: Female
  Weight: 103 kg

DRUGS (6)
  1. MACROBID [CLARITHROMYCIN] [Concomitant]
     Active Substance: CLARITHROMYCIN
     Indication: URINARY TRACT INFECTION
     Dosage: UNK, UNKNOWN
     Route: 065
     Dates: start: 20210413
  2. TYLENOL [Concomitant]
     Active Substance: ACETAMINOPHEN
     Indication: PAIN IN EXTREMITY
     Dosage: UNK, UNKNOWN
     Route: 065
  3. BAMLANIVIMAB. [Suspect]
     Active Substance: BAMLANIVIMAB
     Indication: COVID-19
     Dosage: UNK UNK, SINGLE
     Route: 042
     Dates: start: 20210413, end: 20210413
  4. MOTRIN [Concomitant]
     Active Substance: IBUPROFEN
     Indication: PAIN IN EXTREMITY
  5. ETESEVIMAB. [Suspect]
     Active Substance: ETESEVIMAB
     Indication: COVID-19
     Dosage: UNK, SINGLE
     Route: 042
     Dates: start: 20210413, end: 20210413
  6. BARICITINIB 2MG [Suspect]
     Active Substance: BARICITINIB
     Indication: PRODUCT USED FOR UNKNOWN INDICATION
     Dosage: 4 MG, DAILY
     Route: 048
     Dates: start: 20210416, end: 20210425

REACTIONS (2)
  - COVID-19 pneumonia [Recovering/Resolving]
  - Lymphocyte count decreased [Recovered/Resolved]

NARRATIVE: CASE EVENT DATE: 20210414
